FAERS Safety Report 10368864 (Version 1)
Quarter: 2014Q1

REPORT INFORMATION
  Report Type: Spontaneous
  Country: US (occurrence: None)
  Receive Date: 20140306
  Receipt Date: 20140306
  Transmission Date: 20141002
  Serious: Yes (Hospitalization)
  Sender: FDA-Public Use
  Company Number: 163-21880-13091612

PATIENT
  Age: 76 Year
  Sex: Female
  Weight: 107.96 kg

DRUGS (4)
  1. REVLIMID (LENALIDOMIDE) (5 MILLIGRAM, CAPSULES) [Suspect]
     Indication: MYELODYSPLASTIC SYNDROME
     Dosage: 5 MG, 1 IN 1 D, PO 08/12/2013 - UNKNOWN THERAPY DATES
     Route: 048
     Dates: start: 20130812
  2. RANDEXA(RANOLAZINE) [Concomitant]
  3. CARDIZEM (DILTIAZEM HYDROCHLORIDE) [Concomitant]
  4. PLAVIX (CLOPIDOGREL SULFATE) [Concomitant]

REACTIONS (3)
  - Red blood cell count decreased [None]
  - Muscle spasms [None]
  - Diarrhoea [None]
